FAERS Safety Report 6697588-7 (Version None)
Quarter: 2010Q2

REPORT INFORMATION
  Report Type: 
  Country: None (occurrence: None)
  Receive Date: 20100426
  Receipt Date: 20091222
  Transmission Date: 20101027
  Serious: No
  Sender: FDA-Public Use
  Company Number: US-ABBOTT-09P-163-0616999-00

PATIENT
  Sex: Female

DRUGS (4)
  1. AZMACORT [Suspect]
     Indication: ASTHMA
     Dates: start: 19990101, end: 20090901
  2. FLOVENT [Suspect]
     Indication: DRUG USE FOR UNKNOWN INDICATION
     Dates: start: 20090101, end: 20090101
  3. FLOVENT [Suspect]
     Dates: start: 20090101, end: 20090101
  4. AZMANEX [Suspect]
     Indication: ASTHMA
     Dates: start: 20090101, end: 20090101

REACTIONS (5)
  - ATRIAL FIBRILLATION [None]
  - CHOKING [None]
  - COUGH [None]
  - DYSPNOEA [None]
  - PHARYNGEAL INFLAMMATION [None]
